FAERS Safety Report 8026363-6 (Version None)
Quarter: 2012Q1

REPORT INFORMATION
  Report Type: 
  Country: None (occurrence: None)
  Receive Date: 20120105
  Receipt Date: 20111110
  Transmission Date: 20120608
  Serious: No
  Sender: FDA-Public Use
  Company Number: US-ABBOTT-11P-163-0873216-00

PATIENT
  Sex: Female

DRUGS (1)
  1. SYNTHROID [Suspect]
     Indication: HYPOTHYROIDISM
     Dates: start: 20090101

REACTIONS (7)
  - PRODUCT QUALITY ISSUE [None]
  - THYROXINE FREE INCREASED [None]
  - BLOOD THYROID STIMULATING HORMONE INCREASED [None]
  - BLOOD FOLATE INCREASED [None]
  - DIABETES MELLITUS [None]
  - TRI-IODOTHYRONINE FREE INCREASED [None]
  - VITAMIN B12 INCREASED [None]
